FAERS Safety Report 8121137-X (Version None)
Quarter: 2012Q1

REPORT INFORMATION
  Report Type: 
  Country: None (occurrence: None)
  Receive Date: 20120208
  Receipt Date: 20120130
  Transmission Date: 20120608
  Serious: No
  Sender: FDA-Public Use
  Company Number: US-BAYER-2012-010093

PATIENT
  Age: 49 Year
  Sex: Male

DRUGS (3)
  1. LISINOPRIL [Concomitant]
     Dosage: 10 MG OR 18 MG QD
  2. ACETYLSALICYLIC ACID SRT [Concomitant]
  3. LEVITRA [Suspect]
     Indication: ERECTILE DYSFUNCTION
     Dosage: 20 MG, BIW
     Route: 048
     Dates: start: 20090101, end: 20120101

REACTIONS (1)
  - ERECTILE DYSFUNCTION [None]
